FAERS Safety Report 5775861-4 (Version None)
Quarter: 2008Q2

REPORT INFORMATION
  Report Type: 
  Country: None (occurrence: None)
  Receive Date: 20080617
  Receipt Date: 20080605
  Transmission Date: 20081010
  Serious: Yes (Other)
  Sender: FDA-Public Use
  Company Number: CH-PFIZER INC-2008045790

PATIENT
  Sex: Female
  Weight: 60 kg

DRUGS (5)
  1. CHANTIX [Suspect]
     Indication: SMOKING CESSATION THERAPY
     Route: 048
  2. NICOTINE [Concomitant]
  3. ORAL CONTRACEPTIVE NOS [Concomitant]
  4. NICORETTE [Concomitant]
     Dates: start: 20080322
  5. NICORETTE [Concomitant]
     Dates: start: 20080322

REACTIONS (3)
  - CHEST PAIN [None]
  - DYSPEPSIA [None]
  - NAUSEA [None]
